FAERS Safety Report 18939598 (Version 7)
Quarter: 2021Q1

REPORT INFORMATION
  Report Type: Report from Study
  Country: JP (occurrence: JP)
  Receive Date: 20210224
  Receipt Date: 20210330
  Transmission Date: 20210420
  Serious: Yes (Death, Hospitalization, Other)
  Sender: FDA-Public Use
  Company Number: JP-BRISTOL-MYERS SQUIBB COMPANY-BMS-2021-004574

PATIENT
  Age: 75 Year
  Sex: Female
  Weight: 46.1 kg

DRUGS (4)
  1. CEFAZOLIN SODIUM. [Concomitant]
     Active Substance: CEFAZOLIN SODIUM
     Indication: PROPHYLAXIS
     Dosage: 1 GRAM, Q12H
     Route: 041
     Dates: start: 20210212
  2. FAMOTIDINE. [Concomitant]
     Active Substance: FAMOTIDINE
     Indication: GASTRITIS PROPHYLAXIS
     Dosage: 20 MILLIGRAM, QD
     Route: 042
     Dates: start: 20210212
  3. KCL CORRECTIVE [Concomitant]
     Indication: HYPOKALAEMIA
     Dosage: 10 MILLIEQUIVALENT, Q12H
     Route: 041
     Dates: start: 20210212
  4. NIVOLUMAB [Suspect]
     Active Substance: NIVOLUMAB
     Indication: BILE DUCT CANCER
     Dosage: 480 MILLIGRAM, Q4WK
     Route: 041
     Dates: start: 20201225

REACTIONS (2)
  - Myositis [Not Recovered/Not Resolved]
  - Myasthenia gravis [Fatal]

NARRATIVE: CASE EVENT DATE: 20210109
